FAERS Safety Report 13416969 (Version 4)
Quarter: 2018Q1

REPORT INFORMATION
  Report Type: Report from Study
  Country: None (occurrence: BR)
  Receive Date: 20170406
  Receipt Date: 20180316
  Transmission Date: 20180508
  Serious: Yes (Other)
  Sender: FDA-Public Use
  Company Number: BR-ABBVIE-17P-020-1935173-00

PATIENT
  Age: 74 Year
  Sex: Female
  Weight: 67 kg

DRUGS (7)
  1. VITAMIN D [Concomitant]
     Active Substance: CHOLECALCIFEROL
     Indication: VISUAL IMPAIRMENT
     Route: 065
  2. SYNTHROID [Suspect]
     Active Substance: LEVOTHYROXINE SODIUM
     Indication: THYROIDECTOMY
     Dosage: DAILY DOSE: 122 MCG MORNING, FASTING
     Route: 048
     Dates: start: 2004
  3. ROCALTROL [Concomitant]
     Active Substance: CALCITRIOL
     Indication: BONE DISORDER
     Route: 065
     Dates: start: 2004
  4. COLPOTROFINE [Concomitant]
     Indication: MENOPAUSE
     Route: 067
  5. OMEPRAZOLE. [Concomitant]
     Active Substance: OMEPRAZOLE
     Indication: PROPHYLAXIS
     Dosage: 1IN MORNING / 30 MIN AFTER SYNTHROID
     Route: 065
  6. DEPURA [Concomitant]
     Active Substance: CHOLECALCIFEROL
     Indication: VITAMIN D
     Route: 048
     Dates: start: 2004
  7. CRESTOR [Concomitant]
     Active Substance: ROSUVASTATIN CALCIUM
     Indication: PROPHYLAXIS
     Dosage: DAILY DOSE: 1 TAB IN THE NIGHT, AFTER DINNER
     Route: 048
     Dates: start: 2004

REACTIONS (14)
  - Glaucoma [Unknown]
  - Varicose vein [Unknown]
  - Immunodeficiency [Not Recovered/Not Resolved]
  - Labyrinthitis [Recovering/Resolving]
  - Blood pressure decreased [Not Recovered/Not Resolved]
  - Burning sensation [Not Recovered/Not Resolved]
  - Dysstasia [Recovering/Resolving]
  - Nephrolithiasis [Recovered/Resolved]
  - Drug administration error [Unknown]
  - Pain [Recovering/Resolving]
  - Cataract [Unknown]
  - Dizziness [Not Recovered/Not Resolved]
  - Bone disorder [Not Recovered/Not Resolved]
  - Nasopharyngitis [Not Recovered/Not Resolved]

NARRATIVE: CASE EVENT DATE: 201803
